FAERS Safety Report 12342792 (Version 5)
Quarter: 2016Q3

REPORT INFORMATION
  Report Type: Spontaneous
  Country: US (occurrence: US)
  Receive Date: 20160506
  Receipt Date: 20160727
  Transmission Date: 20161109
  Serious: Yes (Hospitalization, Other)
  Sender: FDA-Public Use
  Company Number: US-BAYER-2016-081833

PATIENT
  Age: 47 Year
  Sex: Female
  Weight: 71.7 kg

DRUGS (58)
  1. ORENITRAM [Suspect]
     Active Substance: TREPROSTINIL
     Indication: PULMONARY HYPERTENSION
     Dosage: UNK UNK, TID
     Route: 048
     Dates: start: 20160307
  2. LETAIRIS [Suspect]
     Active Substance: AMBRISENTAN
     Indication: PULMONARY HYPERTENSION
     Dosage: 10 MG, QD
  3. TRAMADOL. [Concomitant]
     Active Substance: TRAMADOL
     Dosage: UNK
  4. CALCIUM [Concomitant]
     Active Substance: CALCIUM
  5. BIOTIN [Concomitant]
     Active Substance: BIOTIN
     Dosage: 5000 ?G, QD
     Route: 048
  6. DIGOXIN. [Concomitant]
     Active Substance: DIGOXIN
     Dosage: 0.125 ?G, QD
     Route: 048
  7. DIPHENHYDRAMINE. [Concomitant]
     Active Substance: DIPHENHYDRAMINE
     Dosage: 25 MG, BID EVERY BEDTIME AS NEEDED
     Route: 048
  8. OXYGEN. [Concomitant]
     Active Substance: OXYGEN
     Dosage: INHALE 2.5 L, UNK
     Route: 045
  9. ASCORBIC ACID. [Concomitant]
     Active Substance: ASCORBIC ACID
     Dosage: 500 MG, QD
     Route: 048
  10. LETAIRIS [Suspect]
     Active Substance: AMBRISENTAN
     Indication: PULMONARY HYPERTENSION
     Dosage: 10 MG, QD
  11. REVATIO [Suspect]
     Active Substance: SILDENAFIL CITRATE
     Indication: PRODUCT USED FOR UNKNOWN INDICATION
     Dosage: 60 MG, TID
     Route: 048
     Dates: start: 201501
  12. KLOR-CON [Concomitant]
     Active Substance: POTASSIUM CHLORIDE
     Dosage: 20 MEQ, TID
  13. ALDACTONE [Concomitant]
     Active Substance: SPIRONOLACTONE
     Dosage: 100 MG, QD AM
  14. BAYER GENUINE ASPIRIN [Suspect]
     Active Substance: ASPIRIN
     Indication: PRODUCT USED FOR UNKNOWN INDICATION
  15. ORENITRAM [Suspect]
     Active Substance: TREPROSTINIL
     Indication: PULMONARY HYPERTENSION
     Dosage: 2.5 MG, UNK
     Route: 048
  16. ORENITRAM [Suspect]
     Active Substance: TREPROSTINIL
     Indication: PULMONARY HYPERTENSION
     Dosage: 7.5 MG, Q8HR
     Route: 048
  17. LETAIRIS [Suspect]
     Active Substance: AMBRISENTAN
     Indication: PULMONARY HYPERTENSION
     Dosage: 10 MG, QD
     Route: 048
     Dates: start: 20110208
  18. XARELTO [Suspect]
     Active Substance: RIVAROXABAN
     Dosage: 10 MG, QD
     Route: 048
  19. MORPHINE HYDROCHLORIDE [Concomitant]
     Active Substance: MORPHINE HYDROCHLORIDE
     Dosage: UNK
  20. PROMETHAZINE [Concomitant]
     Active Substance: PROMETHAZINE\PROMETHAZINE HYDROCHLORIDE
     Dosage: UNK
  21. SYNTHROID [Concomitant]
     Active Substance: LEVOTHYROXINE SODIUM
     Dosage: 100 ?G, QD
     Route: 048
  22. FERROUS GLUCONATE [Concomitant]
     Active Substance: FERROUS GLUCONATE
     Dosage: 225 MG, BID
     Route: 048
  23. REQUIP [Concomitant]
     Active Substance: ROPINIROLE HYDROCHLORIDE
     Dosage: 0.75 MG, QD EVERY EVENING
     Route: 048
  24. ACIPHEX [Concomitant]
     Active Substance: RABEPRAZOLE SODIUM
     Dosage: UNK
  25. ORENITRAM [Suspect]
     Active Substance: TREPROSTINIL
     Indication: PULMONARY HYPERTENSION
     Dosage: UNK UNK, TID
     Route: 048
  26. ORENITRAM [Suspect]
     Active Substance: TREPROSTINIL
     Indication: PULMONARY HYPERTENSION
     Dosage: 17.5 UNK, UNK
  27. ALPRAZOLAM. [Concomitant]
     Active Substance: ALPRAZOLAM
     Dosage: UNK
  28. DEMADEX [Concomitant]
     Active Substance: TORSEMIDE
     Dosage: 20 MG, TID (60MG PER DAY)
  29. MELOXICAM. [Concomitant]
     Active Substance: MELOXICAM
     Dosage: 7.5 MG, QD
     Route: 048
  30. SIMVASTATIN. [Concomitant]
     Active Substance: SIMVASTATIN
     Dosage: 10 MG, QD EVERY EVENING
     Route: 048
  31. COLACE [Concomitant]
     Active Substance: DOCUSATE SODIUM
     Dosage: 250 MG, BID AS NEEDED
     Route: 048
  32. IRON [Concomitant]
     Active Substance: IRON
     Dosage: 225 MG, BID
     Route: 048
  33. METOLAZONE. [Suspect]
     Active Substance: METOLAZONE
     Indication: OEDEMA
     Dosage: 5 MG, QD
     Route: 048
  34. ORENITRAM [Suspect]
     Active Substance: TREPROSTINIL
     Indication: PULMONARY HYPERTENSION
     Dosage: 2.5 MG, Q8HR
     Route: 048
     Dates: start: 20151229, end: 20160309
  35. LETAIRIS [Suspect]
     Active Substance: AMBRISENTAN
     Indication: PULMONARY HYPERTENSION
     Dosage: 10 MG, QD AM
     Route: 048
  36. VITAMIN B COMPLEX [Concomitant]
     Active Substance: CYANOCOBALAMIN\DEXPANTHENOL\NIACINAMIDE\PYRIDOXINE HYDROCHLORIDE\RIBOFLAVIN 5^-PHOSPHATE SODIUM\THIAMINE HYDROCHLORIDE\VITAMIN B COMPLEX
     Dosage: UNK
  37. RANITIDINE. [Concomitant]
     Active Substance: RANITIDINE
     Dosage: 300 MG, BID
  38. ATIVAN [Concomitant]
     Active Substance: LORAZEPAM
     Dosage: UNK
  39. ORENITRAM [Suspect]
     Active Substance: TREPROSTINIL
     Indication: PULMONARY HYPERTENSION
     Dosage: 10 MG, TID
     Route: 048
  40. ELAVIL [Concomitant]
     Active Substance: AMITRIPTYLINE HYDROCHLORIDE
     Dosage: 10MG, 3 TABLETS AT NIGHT
  41. CELEBREX [Concomitant]
     Active Substance: CELECOXIB
     Dosage: 100 MG, QD
     Route: 048
  42. ONDANSETRON [Concomitant]
     Active Substance: ONDANSETRON
     Dosage: 40 MG, QID EVERY 6 HOURS
     Route: 048
  43. SINEMET [Concomitant]
     Active Substance: CARBIDOPA\LEVODOPA
     Dosage: UNK
  44. TORSEMIDE. [Concomitant]
     Active Substance: TORSEMIDE
  45. ORENITRAM [Suspect]
     Active Substance: TREPROSTINIL
     Indication: PULMONARY HYPERTENSION
     Dosage: 7.5 MG, TID
     Route: 048
  46. ORENITRAM [Suspect]
     Active Substance: TREPROSTINIL
     Indication: PULMONARY HYPERTENSION
     Dosage: 5 MG, BID
     Route: 048
  47. ORENITRAM [Suspect]
     Active Substance: TREPROSTINIL
     Indication: PULMONARY HYPERTENSION
     Dosage: 5 MG, TID
     Route: 048
     Dates: start: 20160307
  48. LETAIRIS [Suspect]
     Active Substance: AMBRISENTAN
     Indication: PULMONARY HYPERTENSION
     Dosage: 10 MG, QD
  49. VITAMIN B12 [Concomitant]
     Active Substance: CYANOCOBALAMIN
     Dosage: UNK
  50. PRILOSEC [Concomitant]
     Active Substance: OMEPRAZOLE MAGNESIUM
     Dosage: 40 MG, BID BEFORE MEAL
     Route: 048
  51. ORENITRAM [Suspect]
     Active Substance: TREPROSTINIL
     Indication: PULMONARY HYPERTENSION
     Dosage: 2.5 MG, TID
     Route: 048
  52. ORENITRAM [Suspect]
     Active Substance: TREPROSTINIL
     Indication: PULMONARY HYPERTENSION
     Dosage: 17.5 MG, QD
     Route: 048
  53. REMODULIN [Suspect]
     Active Substance: TREPROSTINIL
     Indication: PULMONARY HYPERTENSION
     Dosage: 0.092 ?G/KG, CONTINIOUS IV DRIP
     Route: 041
     Dates: start: 20140608, end: 201602
  54. LETAIRIS [Suspect]
     Active Substance: AMBRISENTAN
     Indication: DRUG ABUSE
     Dosage: 10 MG, UNK
     Dates: start: 20130404
  55. FLUTICASONE [Concomitant]
     Active Substance: FLUTICASONE\FLUTICASONE PROPIONATE
     Dosage: UNK, BID
     Route: 061
  56. SIMVASTATIN. [Concomitant]
     Active Substance: SIMVASTATIN
     Dosage: 5 MG, QD
     Route: 048
  57. INVANZ [Concomitant]
     Active Substance: ERTAPENEM SODIUM
     Dosage: 1 G, QD
     Route: 042
  58. UPTRAVI [Concomitant]
     Active Substance: SELEXIPAG
     Dosage: 200 MG, QD

REACTIONS (51)
  - Staphylococcal bacteraemia [Recovered/Resolved]
  - Gastric ulcer [Not Recovered/Not Resolved]
  - Chest discomfort [None]
  - Diarrhoea [Recovered/Resolved]
  - Headache [Unknown]
  - Drug intolerance [Unknown]
  - Acute myocardial infarction [Recovered/Resolved]
  - Device occlusion [Recovered/Resolved]
  - Gait disturbance [Unknown]
  - Abdominal pain [Recovered/Resolved]
  - Nausea [Not Recovered/Not Resolved]
  - Pain in jaw [Unknown]
  - Fluid retention [Unknown]
  - Muscle spasms [Not Recovered/Not Resolved]
  - Oedema peripheral [Unknown]
  - Asthenia [Unknown]
  - Injection site pain [Unknown]
  - Drug dose omission [Recovered/Resolved]
  - Hypotension [Recovered/Resolved]
  - Ascites [None]
  - Upper respiratory tract infection [Unknown]
  - Vomiting [Recovered/Resolved]
  - Pain [Unknown]
  - Dyspnoea [Unknown]
  - Ear haemorrhage [None]
  - Influenza like illness [Recovered/Resolved]
  - Urinary incontinence [Unknown]
  - Pleural effusion [Unknown]
  - Clostridium difficile infection [Recovered/Resolved]
  - Device related sepsis [Recovered/Resolved]
  - Pericardial effusion [Unknown]
  - Malaise [Recovered/Resolved]
  - Cellulitis [Unknown]
  - Acute respiratory failure [Unknown]
  - Bladder disorder [None]
  - Pyrexia [Unknown]
  - Chills [Unknown]
  - Fatigue [Unknown]
  - Flushing [Unknown]
  - Dizziness [Recovered/Resolved]
  - Palpitations [Unknown]
  - Otorrhoea [None]
  - Cardiac failure acute [Recovered/Resolved]
  - Productive cough [None]
  - Abdominal discomfort [Recovered/Resolved]
  - Dyspnoea [Unknown]
  - Fluid overload [Unknown]
  - Localised oedema [Unknown]
  - Syncope [Unknown]
  - Adverse drug reaction [None]
  - Blood pressure decreased [None]

NARRATIVE: CASE EVENT DATE: 20151115
